FAERS Safety Report 18693863 (Version 1)
Quarter: 2021Q1

REPORT INFORMATION
  Report Type: Spontaneous
  Country: US (occurrence: US)
  Receive Date: 20210104
  Receipt Date: 20210104
  Transmission Date: 20210419
  Serious: Yes (Hospitalization, Other)
  Sender: FDA-Public Use
  Company Number: US-AMGEN-USASP2020211988

PATIENT
  Age: 70 Year
  Sex: Female
  Weight: 79.4 kg

DRUGS (5)
  1. EPOGEN [Suspect]
     Active Substance: ERYTHROPOIETIN
     Indication: NEPHROGENIC ANAEMIA
     Dosage: UNK 300 U/KG, QD
     Route: 065
     Dates: start: 20200219
  2. IRON [Concomitant]
     Active Substance: IRON
     Dosage: 200 MILLIGRAM (FOR 5 DAYS)
     Dates: start: 20200219
  3. DESMOPRESSIN [Concomitant]
     Active Substance: DESMOPRESSIN
     Dosage: UNK
     Dates: start: 20200218
  4. THYMOGLOBULIN [Concomitant]
     Active Substance: LAPINE T-LYMPHOCYTE IMMUNE GLOBULIN
     Dosage: 1 MILLIGRAM/KILOGRAM
     Route: 042
     Dates: start: 20200218
  5. BASILIXIMAB [Concomitant]
     Active Substance: BASILIXIMAB
     Dosage: 20 MILLIGRAM
     Route: 042
     Dates: start: 20200218

REACTIONS (2)
  - Anaemia [Recovering/Resolving]
  - Post procedural haematoma [Recovering/Resolving]

NARRATIVE: CASE EVENT DATE: 2020
